FAERS Safety Report 7743658-1 (Version None)
Quarter: 2011Q3

REPORT INFORMATION
  Report Type: 
  Country: None (occurrence: None)
  Receive Date: 20110909
  Receipt Date: 20110909
  Transmission Date: 20111222
  Serious: Yes (Life-Threatening, Hospitalization, Disabling, Other)
  Sender: FDA-Public Use
  Company Number: None

PATIENT
  Age: 43 Year
  Sex: Male
  Weight: 79.3795 kg

DRUGS (2)
  1. CELEXA [Suspect]
     Dosage: .20 MG ORAL
     Route: 048
  2. DILANTIN [Suspect]
     Indication: ROAD TRAFFIC ACCIDENT
     Dosage: 100MG 4 PER DAY ORAL LIFE
     Route: 048
     Dates: start: 20091115

REACTIONS (11)
  - THIRST [None]
  - MEMORY IMPAIRMENT [None]
  - CHEST PAIN [None]
  - HYPERTENSION [None]
  - DEPRESSION [None]
  - COMPLETED SUICIDE [None]
  - CONVULSION [None]
  - CONSTIPATION [None]
  - ERECTILE DYSFUNCTION [None]
  - MYALGIA [None]
  - ARTHRALGIA [None]
